FAERS Safety Report 14879680 (Version 7)
Quarter: 2019Q1

REPORT INFORMATION
  Report Type: Spontaneous
  Country: CZ (occurrence: CZ)
  Receive Date: 20180511
  Receipt Date: 20190214
  Transmission Date: 20190417
  Serious: Yes (Other)
  Sender: FDA-Public Use
  Company Number: CZ-MYLANLABS-2018M1029509

PATIENT
  Age: 28 Year
  Sex: Male

DRUGS (14)
  1. ZOMETA [Suspect]
     Active Substance: ZOLEDRONIC ACID
     Dosage: 4 MILLIGRAM, BIMONTHLY
     Route: 042
     Dates: start: 20170101
  2. AFLIBERCEPT [Suspect]
     Active Substance: AFLIBERCEPT
     Indication: HAEMANGIOMA
     Dosage: 4 MILLIGRAM/KILOGRAM
     Route: 065
     Dates: start: 2015, end: 2017
  3. INTRON A [Suspect]
     Active Substance: INTERFERON ALFA-2B
     Dosage: 6 MILLION IU, Q3W
     Route: 065
     Dates: start: 20050623, end: 20060401
  4. AFLIBERCEPT [Suspect]
     Active Substance: AFLIBERCEPT
     Dosage: 2 MILLIGRAM/KILOGRAM, Q2W
     Route: 065
     Dates: start: 2017
  5. THALIDOMIDE [Suspect]
     Active Substance: THALIDOMIDE
     Indication: PRODUCT USED FOR UNKNOWN INDICATION
     Dosage: 100 MILLIGRAM, QD
     Route: 065
     Dates: start: 201005, end: 201005
  6. INTRON A [Suspect]
     Active Substance: INTERFERON ALFA-2B
     Indication: HAEMANGIOMA
     Dosage: 3 MILLION IU, Q3W
     Dates: start: 20060401
  7. ZOMETA [Suspect]
     Active Substance: ZOLEDRONIC ACID
     Dosage: 4 MG, (4 MG, Q2MO)
     Route: 042
     Dates: start: 20090101, end: 20170101
  8. ZOMETA [Suspect]
     Active Substance: ZOLEDRONIC ACID
     Dosage: 4 MILLIGRAM (4 MG, Q2MO)
     Route: 042
  9. PROPRANOLOL [Suspect]
     Active Substance: PROPRANOLOL HYDROCHLORIDE
     Indication: PRODUCT USED FOR UNKNOWN INDICATION
     Dosage: UNK
  10. TAXOL [Suspect]
     Active Substance: PACLITAXEL
     Indication: ANGIOPATHY
     Dosage: UNK
  11. BEVACIZUMAB. [Concomitant]
     Active Substance: BEVACIZUMAB
     Indication: HAEMANGIOMA
     Dosage: 7.5 MG/KG, Q3W
     Dates: start: 201301, end: 201302
  12. ZOMETA [Suspect]
     Active Substance: ZOLEDRONIC ACID
     Indication: OSTEOLYSIS
     Dosage: 4 MG, UNK (4 MG, 28 WEEK INTERVAL)
     Route: 042
     Dates: start: 20050628, end: 20090101
  13. PACLITAXEL. [Suspect]
     Active Substance: PACLITAXEL
     Indication: ANGIOPATHY
     Dosage: UNK
     Dates: start: 201301, end: 201304
  14. BEVACIZUMAB. [Concomitant]
     Active Substance: BEVACIZUMAB
     Dosage: UNK

REACTIONS (13)
  - Pleural effusion [Unknown]
  - Proteinuria [Recovering/Resolving]
  - Hypotension [Unknown]
  - Decreased appetite [Unknown]
  - Product use in unapproved indication [Unknown]
  - Off label use [Unknown]
  - Depression [Unknown]
  - Fatigue [Unknown]
  - Osteonecrosis [Unknown]
  - Peripheral swelling [Unknown]
  - Neuropathy peripheral [Unknown]
  - Hypertension [Recovered/Resolved]
  - Drug intolerance [Unknown]

NARRATIVE: CASE EVENT DATE: 2017
